FAERS Safety Report 5300741-8 (Version None)
Quarter: 2007Q2

REPORT INFORMATION
  Report Type: 
  Country: None (occurrence: None)
  Receive Date: 20070418
  Receipt Date: 20070416
  Transmission Date: 20071010
  Serious: Yes (Life-Threatening, Hospitalization)
  Sender: FDA-Public Use
  Company Number: US-SANOFI-SYNTHELABO-D01200702454

PATIENT
  Sex: Female
  Weight: 81.8 kg

DRUGS (10)
  1. ASCORBIC ACID [Concomitant]
     Indication: MEDICAL DIET
     Dosage: 500 MG
     Route: 065
     Dates: start: 19990101
  2. PYCNOGENOL [Concomitant]
     Dosage: 50 MG
     Route: 065
     Dates: start: 20050901
  3. GINKGO BILOBA [Concomitant]
     Indication: MEDICAL DIET
     Dosage: 60 MG
     Route: 065
     Dates: start: 20010101
  4. CLOPIDOGREL [Suspect]
     Dosage: 75 MG
     Route: 048
     Dates: start: 20070111
  5. CALCIUM [Concomitant]
     Indication: MEDICAL DIET
     Dosage: 200 MG
     Route: 065
     Dates: start: 19990101
  6. PAXIL [Concomitant]
     Indication: ANXIETY
     Dosage: 20 MG
     Route: 065
     Dates: start: 19930101
  7. OMEGA III [Concomitant]
     Indication: MEDICAL DIET
     Dosage: 180 MG
     Route: 065
     Dates: start: 20050901
  8. CITRACAL + D [Concomitant]
     Indication: MEDICAL DIET
     Dosage: 1 OTHER
     Route: 065
  9. ADVICOR [Concomitant]
     Indication: BLOOD CHOLESTEROL INCREASED
     Dosage: 500 MG
     Route: 065
     Dates: start: 20050701
  10. SL650472 [Suspect]
     Indication: PERIPHERAL ARTERIAL OCCLUSIVE DISEASE
     Dosage: 20 MG
     Route: 048
     Dates: start: 20070125

REACTIONS (1)
  - PULMONARY EMBOLISM [None]
